FAERS Safety Report 10302736 (Version 1)
Quarter: 2014Q3

REPORT INFORMATION
  Report Type: Spontaneous
  Country: IT (occurrence: None)
  Receive Date: 20140708
  Receipt Date: 20140708
  Transmission Date: 20150326
  Serious: Yes (Other)
  Sender: FDA-Public Use
  Company Number: AUR-APL-2014-06131

PATIENT
  Age: 76 Year
  Sex: Male

DRUGS (3)
  1. LEVOFLOXACIN (LEVOFLOXACIN) [Suspect]
     Active Substance: LEVOFLOXACIN
     Indication: BRONCHITIS
     Dosage: TOTAL
     Route: 048
     Dates: start: 20140510, end: 20140510
  2. TRIATEC (CODEINE PHOSPHATE, PARACETAMOL) [Concomitant]
  3. ASCRIPTIN (ACETYLSALICYLIC ACID, ALUMINIUM HYDROXIDE, MAGNESIUM HYDROXIDE) [Concomitant]

REACTIONS (2)
  - Urticaria [None]
  - Erythema [None]

NARRATIVE: CASE EVENT DATE: 20140510
